FAERS Safety Report 5589414-4 (Version None)
Quarter: 2008Q1

REPORT INFORMATION
  Report Type: 
  Country: None (occurrence: None)
  Receive Date: 20080109
  Receipt Date: 20080109
  Transmission Date: 20080703
  Serious: Yes (Life-Threatening, Other)
  Sender: FDA-Public Use
  Company Number: None

PATIENT
  Sex: Female
  Weight: 68.0396 kg

DRUGS (1)
  1. CHANTIX [Suspect]
     Indication: SMOKING CESSATION THERAPY
     Dosage: 1MG  TWICE DAILY  PO
     Route: 048
     Dates: start: 20070918, end: 20071121

REACTIONS (16)
  - AMNESIA [None]
  - CHEST DISCOMFORT [None]
  - CRYING [None]
  - FEAR [None]
  - FEELING ABNORMAL [None]
  - HYPERHIDROSIS [None]
  - IMPAIRED DRIVING ABILITY [None]
  - INSOMNIA [None]
  - MENTAL DISORDER [None]
  - MYALGIA [None]
  - PANIC ATTACK [None]
  - PARANOIA [None]
  - THINKING ABNORMAL [None]
  - TINNITUS [None]
  - VISION BLURRED [None]
  - VISUAL DISTURBANCE [None]
